APPROVED DRUG PRODUCT: APRISO
Active Ingredient: MESALAMINE
Strength: 375MG
Dosage Form/Route: CAPSULE, EXTENDED RELEASE;ORAL
Application: N022301 | Product #001 | TE Code: AB
Applicant: SALIX PHARMACEUTICALS INC
Approved: Oct 31, 2008 | RLD: Yes | RS: Yes | Type: RX

PATENTS:
Patent 8865688 | Expires: May 1, 2030